FAERS Safety Report 4960457-4 (Version None)
Quarter: 2006Q2

REPORT INFORMATION
  Report Type: 
  Country: None (occurrence: None)
  Receive Date: 20060403
  Receipt Date: 20060126
  Transmission Date: 20061013
  Serious: Yes (Other)
  Sender: FDA-Public Use
  Company Number: JP-JPN-A200600367

PATIENT
  Age: 53 Year
  Sex: Female
  Weight: 50.5 kg

DRUGS (5)
  1. PAXIL [Suspect]
     Indication: DEPRESSION
     Dosage: 10MG PER DAY
     Route: 048
     Dates: start: 20060105, end: 20060107
  2. TAKEPRON [Concomitant]
     Dosage: 15MG PER DAY
     Route: 048
     Dates: start: 20050915
  3. KIPRES [Concomitant]
     Indication: ASTHMA
     Dosage: 1U PER DAY
     Route: 048
     Dates: start: 20050630
  4. LIPOVAS [Concomitant]
     Dosage: 10MG PER DAY
     Route: 048
     Dates: start: 20051208
  5. GASMOTIN [Concomitant]
     Dosage: 3U PER DAY
     Route: 048
     Dates: start: 20050915

REACTIONS (10)
  - ANXIETY [None]
  - CONFUSIONAL STATE [None]
  - DYSPEPSIA [None]
  - HOT FLUSH [None]
  - HYPERHIDROSIS [None]
  - HYPOAESTHESIA [None]
  - NAUSEA [None]
  - PANIC ATTACK [None]
  - SEROTONIN SYNDROME [None]
  - STOMACH DISCOMFORT [None]
